FAERS Safety Report 6349073-X (Version None)
Quarter: 2009Q3

REPORT INFORMATION
  Report Type: 
  Country: None (occurrence: None)
  Receive Date: 20090908
  Receipt Date: 20090825
  Transmission Date: 20100115
  Serious: Yes (Death, Other)
  Sender: FDA-Public Use
  Company Number: OPIR20090024

PATIENT
  Age: 23 Year
  Sex: Male
  Weight: 78 kg

DRUGS (4)
  1. OPANA [Suspect]
     Dosage: UNKNOWN, UNKNOWN, INHALATION
  2. TRAMADOL HCL [Suspect]
     Indication: PAIN
  3. LORTAB [Suspect]
     Indication: PAIN
  4. ALPRAZOLAM [Suspect]
     Indication: BIPOLAR DISORDER

REACTIONS (15)
  - ACCIDENTAL DEATH [None]
  - ACCIDENTAL OVERDOSE [None]
  - CONJUNCTIVAL HYPERAEMIA [None]
  - DRUG TOXICITY [None]
  - HAEMORRHAGE [None]
  - INCORRECT ROUTE OF DRUG ADMINISTRATION [None]
  - INTENTIONAL DRUG MISUSE [None]
  - NERVOUS SYSTEM DISORDER [None]
  - PETECHIAE [None]
  - RASH PUSTULAR [None]
  - RENAL DISORDER [None]
  - SCAB [None]
  - SELF-MEDICATION [None]
  - THYMUS DISORDER [None]
  - UNRESPONSIVE TO STIMULI [None]
